FAERS Safety Report 9818168 (Version 3)
Quarter: 2014Q2

REPORT INFORMATION
  Report Type: Spontaneous
  Country: DE (occurrence: DE)
  Receive Date: 20140115
  Receipt Date: 20140425
  Transmission Date: 20141212
  Serious: Yes (Hospitalization)
  Sender: FDA-Public Use
  Company Number: DE-BAYER-2014-005881

PATIENT
  Age: 49 Year
  Sex: Female
  Weight: 63 kg

DRUGS (2)
  1. MIRENA [Suspect]
     Indication: CONTRACEPTION
     Dosage: 20 MCG/24HR, CONT
     Route: 015
     Dates: start: 20110404, end: 201401
  2. DHEA [Concomitant]

REACTIONS (5)
  - Cerebrovascular accident [Recovering/Resolving]
  - Hypotension [None]
  - Aphasia [Recovering/Resolving]
  - Exercise tolerance decreased [Recovering/Resolving]
  - Paraesthesia [Recovering/Resolving]
